FAERS Safety Report 14304307 (Version 1)
Quarter: 2017Q4

REPORT INFORMATION
  Report Type: Spontaneous
  Country: GB (occurrence: GB)
  Receive Date: 20171219
  Receipt Date: 20171219
  Transmission Date: 20180321
  Serious: Yes (Hospitalization, Other)
  Sender: FDA-Public Use
  Company Number: GB-OTSUKA-DJ201405850

PATIENT

DRUGS (6)
  1. OPC-14597 [Suspect]
     Active Substance: CILOSTAZOL
     Indication: SCHIZOAFFECTIVE DISORDER
     Route: 030
     Dates: start: 20140114
  2. FLUOXETINE [Concomitant]
     Active Substance: FLUOXETINE HYDROCHLORIDE
     Indication: DEPRESSIVE SYMPTOM
     Dosage: 18DEC13:20MG  30DEC13:30MG  27JAN14:20MG
     Dates: start: 20131205
  3. FLUOXETINE [Concomitant]
     Active Substance: FLUOXETINE HYDROCHLORIDE
     Indication: OBSESSIVE THOUGHTS
  4. FLUOXETINE [Concomitant]
     Active Substance: FLUOXETINE HYDROCHLORIDE
     Indication: DEPRESSIVE SYMPTOM
     Route: 065
     Dates: start: 20131205
  5. ABILIFY MAINTENA [Suspect]
     Active Substance: ARIPIPRAZOLE
     Indication: SCHIZOAFFECTIVE DISORDER
     Dosage: 400MG-QM-14FEB14
     Route: 030
     Dates: end: 20140114
  6. ABILIFY [Suspect]
     Active Substance: ARIPIPRAZOLE
     Indication: PSYCHOTIC DISORDER
     Route: 048

REACTIONS (8)
  - Psychotic disorder [Unknown]
  - Feeling abnormal [Unknown]
  - Psychotic symptom [Unknown]
  - Affective disorder [Unknown]
  - Mania [Recovered/Resolved]
  - Confusional state [Unknown]
  - Hallucination, auditory [Unknown]
  - Off label use [Unknown]

NARRATIVE: CASE EVENT DATE: 2010
